FAERS Safety Report 4788719-4 (Version None)
Quarter: 2005Q3

REPORT INFORMATION
  Report Type: 
  Country: None (occurrence: None)
  Receive Date: 20050915
  Receipt Date: 20050721
  Transmission Date: 20060218
  Serious: No
  Sender: FDA-Public Use
  Company Number: BDI-007395

PATIENT
  Age: 83 Year
  Sex: Female

DRUGS (3)
  1. MULTIHANCE [Suspect]
     Indication: MULTIPLE SCLEROSIS
     Dosage: 20 ML ONCE IV
     Route: 042
     Dates: start: 20050720, end: 20050720
  2. MULTIHANCE [Suspect]
     Indication: NUCLEAR MAGNETIC RESONANCE IMAGING
     Dosage: 20 ML ONCE IV
     Route: 042
     Dates: start: 20050720, end: 20050720
  3. MULTIHANCE [Suspect]
     Indication: NUCLEAR MAGNETIC RESONANCE IMAGING BRAIN
     Dosage: 20 ML ONCE IV
     Route: 042
     Dates: start: 20050720, end: 20050720

REACTIONS (3)
  - HYPOAESTHESIA [None]
  - PRURITUS [None]
  - URTICARIA [None]
